FAERS Safety Report 9067561 (Version 2)
Quarter: 2013Q1

REPORT INFORMATION
  Report Type: Spontaneous
  Country: US (occurrence: US)
  Receive Date: 20130214
  Receipt Date: 20130315
  Transmission Date: 20140127
  Serious: Yes (Hospitalization)
  Sender: FDA-Public Use
  Company Number: US-B.I. PHARMACEUTICALS,INC./RIDGEFIELD-2013-BI-03816BP

PATIENT
  Age: 78 None
  Sex: Female
  Weight: 79.4 kg

DRUGS (11)
  1. PRADAXA [Suspect]
     Indication: CEREBROVASCULAR ACCIDENT PROPHYLAXIS
     Dosage: 300 MG
     Route: 048
     Dates: start: 20120402, end: 20130125
  2. PRADAXA [Suspect]
     Indication: ATRIAL FIBRILLATION
  3. ZANTAC [Concomitant]
  4. REQUIP [Concomitant]
  5. ZOCOR [Concomitant]
     Indication: HYPERCHOLESTEROLAEMIA
  6. METFORMIN [Concomitant]
     Indication: DIABETES MELLITUS
     Dosage: 1000 MG
  7. LEXAPRO [Concomitant]
     Indication: DEPRESSION
     Dosage: 20 MG
  8. CARAFATE [Concomitant]
  9. LISINOPRIL [Concomitant]
     Indication: HYPERTENSION
     Dosage: 40 MG
  10. SIMVASTATIN [Concomitant]
     Indication: HYPERCHOLESTEROLAEMIA
     Dosage: 20 MG
  11. OMEPRAZOLE [Concomitant]
     Indication: ULCER
     Dosage: 40 MG

REACTIONS (7)
  - Transient ischaemic attack [Not Recovered/Not Resolved]
  - Gastrointestinal haemorrhage [Not Recovered/Not Resolved]
  - Gastric ulcer [Not Recovered/Not Resolved]
  - Haematemesis [Recovered/Resolved]
  - Melaena [Recovered/Resolved]
  - Haematochezia [Recovered/Resolved]
  - Helicobacter infection [Not Recovered/Not Resolved]
